FAERS Safety Report 20799748 (Version 1)
Quarter: 2022Q2

REPORT INFORMATION
  Report Type: Spontaneous
  Country: FR (occurrence: FR)
  Receive Date: 20220509
  Receipt Date: 20220509
  Transmission Date: 20220721
  Serious: Yes (Other)
  Sender: FDA-Public Use
  Company Number: FR-AFSSAPS-AVLY20220218

PATIENT
  Age: 49 Year
  Sex: Female

DRUGS (4)
  1. TRAMADOL [Suspect]
     Active Substance: TRAMADOL
     Indication: Product used for unknown indication
     Dosage: 1500 MILLIGRAM, ONCE A DAY (BETWEEN 750-1500MG/DAY DECLARED (IN THE FORM OF TABLETS AT 50 MG LI))
     Route: 048
     Dates: start: 202108, end: 20220309
  2. TRAMADOL [Suspect]
     Active Substance: TRAMADOL
     Dosage: 100 MILLIGRAM, ONCE A DAY (50MG LI X 2 IN THE EVENING)
     Route: 048
     Dates: start: 20220309, end: 20220324
  3. TRAMADOL [Suspect]
     Active Substance: TRAMADOL
     Dosage: 200 MILLIGRAM, ONCE A DAY (100MG LP MORNING AND EVENING)
     Route: 048
     Dates: start: 20220324, end: 20220329
  4. TRAMADOL [Suspect]
     Active Substance: TRAMADOL
     Dosage: 300 MILLIGRAM, ONCE A DAY (150MG LP MORNING AND EVENING)
     Route: 048
     Dates: start: 20220329

REACTIONS (1)
  - Drug dependence [Recovering/Resolving]
